FAERS Safety Report 9689332 (Version 2)
Quarter: 2013Q4

REPORT INFORMATION
  Report Type: Spontaneous
  Country: DE (occurrence: DE)
  Receive Date: 20131114
  Receipt Date: 20131202
  Transmission Date: 20140711
  Serious: Yes (Hospitalization)
  Sender: FDA-Public Use
  Company Number: DE-B.I. PHARMACEUTICALS,INC./RIDGEFIELD-2013-BI-34954DE

PATIENT
  Age: 84 Year
  Sex: Female

DRUGS (3)
  1. PRADAXA [Suspect]
     Indication: ATRIAL FIBRILLATION
     Dosage: 220 MG
     Route: 048
     Dates: start: 20130211, end: 20131014
  2. RAMIPRIL [Suspect]
     Indication: HYPERTENSION
     Route: 048
  3. CEFUROXIM [Concomitant]
     Indication: WOUND INFECTION
     Dosage: 1000 MG
     Route: 048
     Dates: start: 20131010, end: 20131014

REACTIONS (2)
  - Jaundice [Recovered/Resolved]
  - Hepatic enzyme increased [Unknown]
